FAERS Safety Report 5739478-X (Version None)
Quarter: 2008Q2

REPORT INFORMATION
  Report Type: 
  Country: None (occurrence: None)
  Receive Date: 20080515
  Receipt Date: 20080507
  Transmission Date: 20081010
  Serious: Yes (Other)
  Sender: FDA-Public Use
  Company Number: PHHY2008AU07293

PATIENT
  Age: 59 Year
  Weight: 78 kg

DRUGS (5)
  1. LOPID [Concomitant]
     Dosage: 600MG DAILY
     Route: 048
     Dates: start: 19940101
  2. OGEN [Concomitant]
     Dosage: 1.2MG DAILY
     Route: 048
     Dates: start: 19950101
  3. PROVERA [Concomitant]
     Dosage: 5MG DAILY
     Route: 048
     Dates: start: 19950101
  4. LOSEC /SWE/ [Concomitant]
     Dosage: 20MG DAILY
     Dates: start: 19980101
  5. FAMVIR [Suspect]
     Indication: HERPES ZOSTER
     Dosage: 750MG DAILY
     Route: 048
     Dates: start: 19981005, end: 19981010

REACTIONS (5)
  - CHOLURIA [None]
  - HEADACHE [None]
  - HEPATIC FUNCTION ABNORMAL [None]
  - NAUSEA [None]
  - PYREXIA [None]
